FAERS Safety Report 23703009 (Version 1)
Quarter: 2024Q2

REPORT INFORMATION
  Report Type: Spontaneous
  Country: US (occurrence: None)
  Receive Date: 20240403
  Receipt Date: 20240403
  Transmission Date: 20240717
  Serious: Yes (Hospitalization)
  Sender: FDA-Public Use
  Company Number: None

PATIENT
  Sex: Female

DRUGS (1)
  1. CINACALCET HYDROCHLORIDE [Suspect]
     Active Substance: CINACALCET HYDROCHLORIDE
     Dosage: OTHER QUANTITY : TAKE 1 TABLET;?FREQUENCY : EVERY OTHER DAY;?
     Route: 048
     Dates: start: 20240206

REACTIONS (2)
  - Hospitalisation [None]
  - Therapy interrupted [None]
